FAERS Safety Report 8510903-4 (Version None)
Quarter: 2012Q3

REPORT INFORMATION
  Report Type: 
  Country: None (occurrence: None)
  Receive Date: 20120716
  Receipt Date: 20120710
  Transmission Date: 20120928
  Serious: Yes (Life-Threatening, Other)
  Sender: FDA-Public Use
  Company Number: US-CELGENEUS-163-21880-12061783

PATIENT
  Sex: Male

DRUGS (17)
  1. NEXIUM [Concomitant]
     Route: 065
  2. VALTREX [Concomitant]
     Route: 065
  3. CALCIUM +D [Concomitant]
     Route: 065
  4. L-LYSINE [Concomitant]
     Route: 065
  5. REVLIMID [Suspect]
     Indication: MULTIPLE MYELOMA
     Dosage: 10 MILLIGRAM
     Route: 048
     Dates: start: 20120310, end: 20120416
  6. BACTRIM [Concomitant]
     Route: 065
  7. PROBIOTIC [Concomitant]
     Route: 065
  8. ZYRTEC [Concomitant]
     Route: 065
  9. LYRICA [Concomitant]
     Route: 065
  10. ASPIRIN [Concomitant]
     Route: 065
  11. BENADRYL [Concomitant]
     Route: 065
  12. FOLIC ACID [Concomitant]
     Route: 065
  13. SOMA [Concomitant]
     Route: 065
  14. MUCINEX [Concomitant]
     Route: 065
  15. REVLIMID [Suspect]
     Dosage: 5 MILLIGRAM
     Route: 048
     Dates: start: 20120612
  16. ZOMETA [Concomitant]
     Route: 065
  17. ZANTAC [Concomitant]
     Route: 065

REACTIONS (3)
  - SWOLLEN TONGUE [None]
  - RASH GENERALISED [None]
  - DYSPHAGIA [None]
